FAERS Safety Report 21345787 (Version 2)
Quarter: 2022Q3

REPORT INFORMATION
  Report Type: Spontaneous
  Country: US (occurrence: US)
  Receive Date: 20220916
  Receipt Date: 20220919
  Transmission Date: 20221026
  Serious: No
  Sender: FDA-Public Use
  Company Number: US-PFIZER INC-PV202200064850

PATIENT
  Age: 74 Year
  Sex: Female

DRUGS (2)
  1. MEKTOVI [Suspect]
     Active Substance: BINIMETINIB
     Indication: Bone cancer
     Dosage: 45 MG
  2. BRAFTOVI [Suspect]
     Active Substance: ENCORAFENIB
     Indication: Bone cancer
     Dosage: 450 MG

REACTIONS (2)
  - Computerised tomogram abnormal [Unknown]
  - Off label use [Unknown]
